FAERS Safety Report 24707951 (Version 1)
Quarter: 2024Q4

REPORT INFORMATION
  Report Type: Spontaneous
  Country: US (occurrence: US)
  Receive Date: 20241206
  Receipt Date: 20241206
  Transmission Date: 20250115
  Serious: Yes (Other)
  Sender: AMERICAN REGENT
  Company Number: US-AMERICAN REGENT INC-2024004570

PATIENT
  Age: 42 Year

DRUGS (2)
  1. VENOFER [Suspect]
     Active Substance: IRON SUCROSE
     Indication: Product used for unknown indication
     Dosage: UNK, SINGLE (^DOUBLE BAG^)
     Route: 065
     Dates: start: 20241126, end: 20241126
  2. WHOLE BLOOD [Concomitant]
     Active Substance: WHOLE BLOOD
     Indication: Product used for unknown indication
     Dosage: UNK
     Route: 065

REACTIONS (5)
  - Immune system disorder [Unknown]
  - Somnolence [Recovered/Resolved]
  - Migraine [Unknown]
  - Bone pain [Unknown]
  - Nausea [Unknown]

NARRATIVE: CASE EVENT DATE: 20241126
